FAERS Safety Report 6737885-X (Version None)
Quarter: 2010Q2

REPORT INFORMATION
  Report Type: 
  Country: None (occurrence: None)
  Receive Date: 20100524
  Receipt Date: 20100518
  Transmission Date: 20101027
  Serious: Yes (Death, Hospitalization)
  Sender: FDA-Public Use
  Company Number: NL-ROCHE-668084

PATIENT
  Sex: Male
  Weight: 92 kg

DRUGS (6)
  1. BEVACIZUMAB [Suspect]
     Route: 042
     Dates: start: 20091105, end: 20091105
  2. TEMSIROLIMUS [Suspect]
     Route: 042
     Dates: start: 20091105, end: 20091105
  3. PRIMPERAN TAB [Concomitant]
     Indication: NAUSEA
     Dates: start: 20091101, end: 20091124
  4. NEXIUM [Concomitant]
     Indication: GASTRIC DISORDER
     Route: 048
     Dates: start: 20090701, end: 20091124
  5. PARACETAMOL [Concomitant]
     Indication: PAIN
     Route: 048
     Dates: start: 20091102, end: 20091124
  6. FENTANYL [Concomitant]
     Indication: PAIN
     Dates: end: 20091124

REACTIONS (2)
  - PYREXIA [None]
  - TUMOUR LYSIS SYNDROME [None]
